FAERS Safety Report 11117970 (Version 1)
Quarter: 2015Q2

REPORT INFORMATION
  Report Type: Spontaneous
  Country: US (occurrence: US)
  Receive Date: 20150518
  Receipt Date: 20150518
  Transmission Date: 20150821
  Serious: No
  Sender: FDA-Public Use
  Company Number: US-ASTRAZENECA-2015SE43227

PATIENT
  Sex: Male

DRUGS (4)
  1. LANSOPRAZOLE. [Concomitant]
     Active Substance: LANSOPRAZOLE
  2. PRILOSEC [Suspect]
     Active Substance: OMEPRAZOLE MAGNESIUM
     Dosage: GENERIC
     Route: 048
  3. PREVACID [Concomitant]
     Active Substance: LANSOPRAZOLE
  4. PRILOSEC [Suspect]
     Active Substance: OMEPRAZOLE MAGNESIUM
     Route: 048

REACTIONS (8)
  - Vomiting [Unknown]
  - Pain [Unknown]
  - Hyperhidrosis [Unknown]
  - Drug ineffective [Unknown]
  - Hyperchlorhydria [Unknown]
  - Salivary hypersecretion [Unknown]
  - Abdominal discomfort [Unknown]
  - Adverse event [Unknown]
